FAERS Safety Report 7814415-2 (Version None)
Quarter: 2011Q4

REPORT INFORMATION
  Report Type: 
  Country: None (occurrence: None)
  Receive Date: 20111012
  Receipt Date: 20110929
  Transmission Date: 20120403
  Serious: Yes (Hospitalization, Other)
  Sender: FDA-Public Use
  Company Number: CIP11000511

PATIENT
  Sex: Female
  Weight: 71.2 kg

DRUGS (4)
  1. FOSAMAX [Suspect]
     Indication: OSTEOPOROSIS
     Dosage: 70 MG ONCE WEEKLY, ORAL
     Route: 048
     Dates: start: 20060403, end: 20080115
  2. ALENDRONATE SODIUM [Suspect]
     Dosage: 70 MG, ORAL
     Route: 048
     Dates: start: 20080209, end: 20081107
  3. ACTONEL [Suspect]
     Dosage: 35 MG, ORAL
     Route: 048
     Dates: start: 20081112, end: 20080101
  4. FOSAMAX [Suspect]
     Indication: OSTEOPOROSIS
     Dosage: 10 MG DAILY, ORAL
     Route: 048

REACTIONS (9)
  - PATHOLOGICAL FRACTURE [None]
  - FALL [None]
  - PAIN IN EXTREMITY [None]
  - MUSCULAR WEAKNESS [None]
  - ARTHRALGIA [None]
  - FEMUR FRACTURE [None]
  - HAEMORRHAGIC ANAEMIA [None]
  - IMMOBILE [None]
  - DYSSTASIA [None]
